FAERS Safety Report 16414234 (Version 1)
Quarter: 2019Q2

REPORT INFORMATION
  Report Type: Spontaneous
  Country: PT (occurrence: PT)
  Receive Date: 20190611
  Receipt Date: 20190611
  Transmission Date: 20190711
  Serious: Yes (Hospitalization, Other)
  Sender: FDA-Public Use
  Company Number: PT-MYLANLABS-2019M1053862

PATIENT
  Age: 15 Year
  Sex: Female

DRUGS (2)
  1. ISOTRETINOIN. [Suspect]
     Active Substance: ISOTRETINOIN
     Indication: PRODUCT USED FOR UNKNOWN INDICATION
     Dosage: 9 SESSIONS
     Route: 048
     Dates: start: 20150325, end: 20150420
  2. METHOXSALEN. [Suspect]
     Active Substance: METHOXSALEN
     Indication: PRODUCT USED FOR UNKNOWN INDICATION
     Dosage: INITIAL, FINAL AND TOTAL DOSES OF 1.5, 9, AND 29.5 J/CM2, RESPECTIVELY; 9 SESSIONS
     Route: 048
     Dates: start: 20150325, end: 20150420

REACTIONS (4)
  - Systemic lupus erythematosus [Recovered/Resolved with Sequelae]
  - Lupus nephritis [Recovered/Resolved]
  - Condition aggravated [Recovered/Resolved]
  - Skin lesion [Recovered/Resolved]

NARRATIVE: CASE EVENT DATE: 201504
